FAERS Safety Report 9732798 (Version 2)
Quarter: 2013Q4

REPORT INFORMATION
  Report Type: Spontaneous
  Country: JP (occurrence: JP)
  Receive Date: 20131205
  Receipt Date: 20131210
  Transmission Date: 20140711
  Serious: Yes (Hospitalization, Other)
  Sender: FDA-Public Use
  Company Number: JP-BAYER-2013-146286

PATIENT
  Age: 46 Year
  Sex: Female

DRUGS (2)
  1. BAYASPIRIN [Suspect]
     Indication: ANTIPHOSPHOLIPID SYNDROME
     Route: 048
  2. GASTROGRAFIN [Concomitant]
     Indication: SCAN WITH CONTRAST

REACTIONS (6)
  - Small intestinal stenosis [None]
  - Small intestine ulcer [None]
  - Large intestinal ulcer [None]
  - Diarrhoea [None]
  - Faeces discoloured [None]
  - Off label use [None]
